FAERS Safety Report 11855553 (Version 1)
Quarter: 2015Q4

REPORT INFORMATION
  Report Type: Spontaneous
  Country: US (occurrence: US)
  Receive Date: 20151221
  Receipt Date: 20151221
  Transmission Date: 20160305
  Serious: No
  Sender: FDA-Public Use
  Company Number: US-PERRIGO-15US005849

PATIENT
  Age: 67 Year
  Sex: Female
  Weight: 99.77 kg

DRUGS (1)
  1. MUPIROCIN. [Suspect]
     Active Substance: MUPIROCIN
     Indication: INFECTION
     Dosage: 1 SMALL APPLICATION, SINGLE
     Route: 061
     Dates: start: 20150605, end: 20150605

REACTIONS (2)
  - Drug administered at inappropriate site [Recovered/Resolved]
  - Product taste abnormal [Recovered/Resolved]

NARRATIVE: CASE EVENT DATE: 20150605
